FAERS Safety Report 7747440-0 (Version None)
Quarter: 2011Q3

REPORT INFORMATION
  Report Type: 
  Country: None (occurrence: None)
  Receive Date: 20110909
  Receipt Date: 20110829
  Transmission Date: 20111222
  Serious: Yes (Hospitalization)
  Sender: FDA-Public Use
  Company Number: NGX_00594_2011

PATIENT
  Age: 22 Year
  Sex: Male

DRUGS (1)
  1. QUTENZA [Suspect]
     Indication: PAIN
     Dosage: 2 DF, PATCH, TOPICAL
     Route: 061
     Dates: start: 20110801, end: 20110801

REACTIONS (1)
  - GUILLAIN-BARRE SYNDROME [None]
